FAERS Safety Report 11321305 (Version 6)
Quarter: 2018Q2

REPORT INFORMATION
  Report Type: Report from Study
  Country: US (occurrence: US)
  Receive Date: 20150729
  Receipt Date: 20180507
  Transmission Date: 20180711
  Serious: Yes (Life-Threatening, Hospitalization, Other)
  Sender: FDA-Public Use
  Company Number: US-EISAI MEDICAL RESEARCH-EC-2015-008722

PATIENT
  Age: 66 Year
  Sex: Female
  Weight: 122 kg

DRUGS (27)
  1. ALBUTEROL. [Concomitant]
     Active Substance: ALBUTEROL
  2. HYDRALAZINE [Concomitant]
     Active Substance: HYDRALAZINE HYDROCHLORIDE
  3. LORCASERIN [Suspect]
     Active Substance: LORCASERIN HYDROCHLORIDE
     Route: 048
     Dates: start: 20170511, end: 20170703
  4. LORCASERIN [Suspect]
     Active Substance: LORCASERIN HYDROCHLORIDE
     Route: 048
     Dates: start: 20170923, end: 20171114
  5. COREG [Concomitant]
     Active Substance: CARVEDILOL
  6. SPIRONOLACTONE. [Concomitant]
     Active Substance: SPIRONOLACTONE
  7. LORCASERIN [Suspect]
     Active Substance: LORCASERIN HYDROCHLORIDE
     Route: 048
     Dates: start: 20170907, end: 20170907
  8. LASIX [Concomitant]
     Active Substance: FUROSEMIDE
  9. NOVOLOG [Concomitant]
     Active Substance: INSULIN ASPART
  10. CIPROFLAXIN [Concomitant]
     Active Substance: CIPROFLOXACIN
  11. LORCASERIN [Suspect]
     Active Substance: LORCASERIN HYDROCHLORIDE
     Indication: WEIGHT CONTROL
     Route: 048
     Dates: start: 20141027, end: 20150607
  12. MIRALAX [Concomitant]
     Active Substance: POLYETHYLENE GLYCOL 3350
  13. SYMBICORT [Concomitant]
     Active Substance: BUDESONIDE\FORMOTEROL FUMARATE DIHYDRATE
  14. HUMALOG [Concomitant]
     Active Substance: INSULIN LISPRO
  15. LORCASERIN [Suspect]
     Active Substance: LORCASERIN HYDROCHLORIDE
     Route: 048
     Dates: start: 20150613, end: 20160515
  16. LORCASERIN [Suspect]
     Active Substance: LORCASERIN HYDROCHLORIDE
     Route: 048
     Dates: start: 20160520, end: 20161003
  17. COZAAR [Concomitant]
     Active Substance: LOSARTAN POTASSIUM
  18. ASPIRIN. [Concomitant]
     Active Substance: ASPIRIN
  19. LORCASERIN [Suspect]
     Active Substance: LORCASERIN HYDROCHLORIDE
     Route: 048
     Dates: start: 20171119, end: 20180122
  20. POTASSIUM CHLORIDE. [Concomitant]
     Active Substance: POTASSIUM CHLORIDE
  21. LORCASERIN [Suspect]
     Active Substance: LORCASERIN HYDROCHLORIDE
     Route: 048
     Dates: start: 20161014, end: 20170425
  22. LORCASERIN [Suspect]
     Active Substance: LORCASERIN HYDROCHLORIDE
     Route: 048
     Dates: start: 20170826, end: 20170831
  23. PRAVACHOL [Concomitant]
     Active Substance: PRAVASTATIN SODIUM
  24. LEVEMIR [Concomitant]
     Active Substance: INSULIN DETEMIR
  25. LOPERAMIDE [Concomitant]
     Active Substance: LOPERAMIDE
  26. IRON [Concomitant]
     Active Substance: IRON
  27. LORCASERIN [Suspect]
     Active Substance: LORCASERIN HYDROCHLORIDE
     Route: 048
     Dates: start: 20170708, end: 20170817

REACTIONS (11)
  - Breast fibrosis [Recovered/Resolved]
  - Cardiac failure congestive [Recovered/Resolved]
  - Acute kidney injury [Recovered/Resolved]
  - Osteoarthritis [Recovered/Resolved]
  - Respiratory failure [Recovered/Resolved]
  - Pneumonia [Recovered/Resolved]
  - Cardiomyopathy [Recovered/Resolved]
  - Arthralgia [Recovered/Resolved]
  - Chronic obstructive pulmonary disease [Recovered/Resolved]
  - Hyperkalaemia [Recovered/Resolved]
  - Mitral valve incompetence [Recovering/Resolving]

NARRATIVE: CASE EVENT DATE: 20150414
